FAERS Safety Report 4425093-7 (Version None)
Quarter: 2004Q3

REPORT INFORMATION
  Report Type: 
  Country: None (occurrence: None)
  Receive Date: 20040810
  Receipt Date: 20040728
  Transmission Date: 20050211
  Serious: Yes (Hospitalization)
  Sender: FDA-Public Use
  Company Number: 2004AC00138

PATIENT
  Age: 19 Year
  Sex: Male
  Weight: 70 kg

DRUGS (10)
  1. QUETIAPINE [Suspect]
     Dosage: 9000 MG PO
     Route: 048
  2. OXCARBAZEPINE [Suspect]
     Dosage: 36000 MG PO
     Route: 048
  3. ATOMOXETINE [Suspect]
     Dosage: 1200 MG
  4. ACETAMINOPHEN [Concomitant]
  5. SALICYLATE [Concomitant]
  6. ETHANOL [Concomitant]
  7. MARIJUANA [Concomitant]
  8. PAROXETINE HCL [Concomitant]
  9. ALBUTEROL [Concomitant]
  10. MONTELUKAST [Concomitant]

REACTIONS (17)
  - AGGRESSION [None]
  - AGITATION [None]
  - CARDIAC MURMUR [None]
  - DEPRESSED LEVEL OF CONSCIOUSNESS [None]
  - ELECTROCARDIOGRAM QT CORRECTED INTERVAL PROLONGED [None]
  - EXCORIATION [None]
  - HALLUCINATIONS, MIXED [None]
  - HEAD BANGING [None]
  - INTENTIONAL SELF-INJURY [None]
  - JOINT INJURY [None]
  - MEDICATION ERROR [None]
  - MULTIPLE DRUG OVERDOSE INTENTIONAL [None]
  - SELF INJURIOUS BEHAVIOUR [None]
  - SOMNOLENCE [None]
  - SUICIDAL IDEATION [None]
  - SUICIDE ATTEMPT [None]
  - VOMITING [None]
